FAERS Safety Report 25540451 (Version 2)
Quarter: 2025Q3

REPORT INFORMATION
  Report Type: Spontaneous
  Country: US (occurrence: US)
  Receive Date: 20250710
  Receipt Date: 20250731
  Transmission Date: 20251020
  Serious: No
  Sender: INCYTE
  Company Number: US-EVENT-003282

PATIENT
  Age: 45 Year

DRUGS (1)
  1. OPZELURA [Suspect]
     Active Substance: RUXOLITINIB PHOSPHATE
     Indication: Product used for unknown indication
     Dosage: 1.5 PERCENT, THIN LAYER TO AFFECTED AREA(S) ON FACE AND BODY X3M
     Route: 065

REACTIONS (4)
  - Inappropriate schedule of product administration [Unknown]
  - Pruritus [Unknown]
  - Off label use [Unknown]
  - Product availability issue [Unknown]
